FAERS Safety Report 5880604-X (Version None)
Quarter: 2008Q3

REPORT INFORMATION
  Report Type: 
  Country: None (occurrence: None)
  Receive Date: 20080912
  Receipt Date: 20080604
  Transmission Date: 20090109
  Serious: No
  Sender: FDA-Public Use
  Company Number: US-ABBOTT-08P-163-0454964-00

PATIENT
  Sex: Female
  Weight: 88.53 kg

DRUGS (2)
  1. HUMIRA [Suspect]
     Indication: RHEUMATOID ARTHRITIS
     Route: 058
     Dates: start: 20080217, end: 20080513
  2. HUMIRA [Suspect]
     Dates: start: 20080601

REACTIONS (8)
  - EAR PAIN [None]
  - HEADACHE [None]
  - JOINT SWELLING [None]
  - NASAL OEDEMA [None]
  - OROPHARYNGEAL PAIN [None]
  - RHINALGIA [None]
  - STREPTOCOCCAL INFECTION [None]
  - SWELLING FACE [None]
